FAERS Safety Report 20815433 (Version 4)
Quarter: 2022Q4

REPORT INFORMATION
  Report Type: Spontaneous
  Country: US (occurrence: US)
  Receive Date: 20220511
  Receipt Date: 20221228
  Transmission Date: 20230112
  Serious: No
  Sender: FDA-Public Use
  Company Number: US-PFIZER INC-202101290095

PATIENT
  Age: 55 Year
  Sex: Male

DRUGS (1)
  1. XELJANZ [Suspect]
     Active Substance: TOFACITINIB CITRATE
     Dosage: 10 MG
     Dates: start: 20211020

REACTIONS (15)
  - Fatigue [Unknown]
  - Rash [Unknown]
  - Pollakiuria [Unknown]
  - Hyperhidrosis [Unknown]
  - Nausea [Unknown]
  - Headache [Unknown]
  - Sinus disorder [Unknown]
  - Nasopharyngitis [Unknown]
  - Pain [Unknown]
  - Insomnia [Unknown]
  - Nasal dryness [Unknown]
  - Dry eye [Unknown]
  - Eyelid skin dryness [Unknown]
  - Back pain [Unknown]
  - Hypoaesthesia [Unknown]

NARRATIVE: CASE EVENT DATE: 20210101
